FAERS Safety Report 10967753 (Version 1)
Quarter: 2015Q1

REPORT INFORMATION
  Report Type: Spontaneous
  Country: BR (occurrence: BR)
  Receive Date: 20150330
  Receipt Date: 20150330
  Transmission Date: 20150721
  Serious: Yes (Other)
  Sender: FDA-Public Use
  Company Number: BR-BAYER-2015-018503

PATIENT
  Age: 35 Year
  Sex: Female
  Weight: 49 kg

DRUGS (1)
  1. MIRENA [Suspect]
     Active Substance: LEVONORGESTREL
     Indication: MENORRHAGIA
     Dosage: 20 MCG/24HR, CONT
     Route: 015
     Dates: start: 20140326, end: 20150224

REACTIONS (10)
  - Presyncope [None]
  - Post procedural haemorrhage [Recovered/Resolved]
  - Nausea [Recovered/Resolved]
  - Device dislocation [None]
  - Procedural pain [None]
  - Menorrhagia [Not Recovered/Not Resolved]
  - Drug ineffective [Not Recovered/Not Resolved]
  - Acne [Recovered/Resolved]
  - Complication of device insertion [None]
  - Procedural pain [Recovered/Resolved]

NARRATIVE: CASE EVENT DATE: 20140326
